FAERS Safety Report 5681019-X (Version None)
Quarter: 2008Q1

REPORT INFORMATION
  Report Type: 
  Country: None (occurrence: None)
  Receive Date: 20080325
  Receipt Date: 20060817
  Transmission Date: 20080703
  Serious: Yes (Death, Hospitalization)
  Sender: FDA-Public Use
  Company Number: 2008PL000032

PATIENT
  Age: 51 Year
  Sex: Female

DRUGS (9)
  1. IMURAN [Suspect]
     Dosage: PO
     Route: 048
     Dates: start: 19990101, end: 20050901
  2. REMICADE [Suspect]
     Indication: CROHN'S DISEASE
     Dates: end: 20051101
  3. REMICADE [Suspect]
     Indication: GRAFT VERSUS HOST DISEASE
     Dates: end: 20051101
  4. REMICADE [Suspect]
     Indication: CROHN'S DISEASE
     Dates: start: 20030101
  5. REMICADE [Suspect]
     Indication: GRAFT VERSUS HOST DISEASE
     Dates: start: 20030101
  6. REMICADE [Suspect]
     Indication: CROHN'S DISEASE
     Dates: start: 20060601
  7. REMICADE [Suspect]
     Indication: GRAFT VERSUS HOST DISEASE
     Dates: start: 20060601
  8. GM-CSF [Concomitant]
  9. SULFSALAZINE [Concomitant]

REACTIONS (7)
  - ACUTE MYELOID LEUKAEMIA [None]
  - ASPERGILLOSIS [None]
  - BONE MARROW TRANSPLANT [None]
  - GRAFT VERSUS HOST DISEASE [None]
  - HEMIPARESIS [None]
  - LEUKOPENIA [None]
  - TRANSPLANT FAILURE [None]
